FAERS Safety Report 10551753 (Version 3)
Quarter: 2014Q4

REPORT INFORMATION
  Report Type: Spontaneous
  Country: DE (occurrence: DE)
  Receive Date: 20141029
  Receipt Date: 20141118
  Transmission Date: 20150529
  Serious: Yes (Other)
  Sender: FDA-Public Use
  Company Number: DE-GLAXOSMITHKLINE-DE2014GSK008600

PATIENT
  Sex: Female

DRUGS (2)
  1. CIPROBETA [Suspect]
     Active Substance: CIPROFLOXACIN HYDROCHLORIDE
     Indication: PRODUCT USED FOR UNKNOWN INDICATION
     Dosage: 500 MG, UNK
  2. MALARONE [Suspect]
     Active Substance: ATOVAQUONE\PROGUANIL HYDROCHLORIDE
     Indication: MALARIA PROPHYLAXIS
     Dosage: 1 UNK, QD
     Dates: start: 20140730, end: 20140807

REACTIONS (14)
  - Dizziness [Recovered/Resolved]
  - Confusional state [Unknown]
  - Urinary incontinence [Unknown]
  - Vomiting [Recovered/Resolved]
  - Urinary tract infection [Unknown]
  - Disturbance in attention [Unknown]
  - Headache [Recovered/Resolved]
  - Loss of consciousness [Unknown]
  - Depressed level of consciousness [Recovered/Resolved]
  - Disorientation [Recovered/Resolved]
  - Amnesia [Unknown]
  - Tremor [Unknown]
  - Seizure [Recovered/Resolved]
  - Myalgia [Unknown]
